FAERS Safety Report 4901812-8 (Version None)
Quarter: 2006Q1

REPORT INFORMATION
  Report Type: 
  Country: None (occurrence: None)
  Receive Date: 20060202
  Receipt Date: 20060202
  Transmission Date: 20060701
  Serious: Yes (Death)
  Sender: FDA-Public Use
  Company Number: None

PATIENT
  Sex: Female
  Weight: 35 kg

DRUGS (4)
  1. PROPOFOL [Suspect]
     Indication: INTRACRANIAL PRESSURE INCREASED
     Dosage: 6-10 MG/KG/HR FOR 38  HOURS IV
     Route: 042
     Dates: start: 20060108, end: 20060109
  2. THIOPENTAL SODIUM [Concomitant]
  3. MANNITOL [Concomitant]
  4. SALINE [Concomitant]

REACTIONS (3)
  - ARRHYTHMIA [None]
  - MULTI-ORGAN FAILURE [None]
  - PROPOFOL INFUSION SYNDROME [None]
